FAERS Safety Report 11358638 (Version 1)
Quarter: 2015Q3

REPORT INFORMATION
  Report Type: Spontaneous
  Country: US (occurrence: US)
  Receive Date: 20150803
  Receipt Date: 20150803
  Transmission Date: 20151125
  Serious: No
  Sender: FDA-Public Use
  Company Number: US-ELI_LILLY_AND_COMPANY-US200902000106

PATIENT
  Age: 38 Year
  Sex: Female

DRUGS (3)
  1. ZYPREXA [Suspect]
     Active Substance: OLANZAPINE
     Dosage: 20 MG, UNK
  2. CYMBALTA [Concomitant]
     Active Substance: DULOXETINE HYDROCHLORIDE
     Dosage: 120 MG, UNK
     Dates: start: 20080801
  3. ZYPREXA [Suspect]
     Active Substance: OLANZAPINE
     Dosage: 15 MG, UNK

REACTIONS (1)
  - Panic attack [Recovered/Resolved]

NARRATIVE: CASE EVENT DATE: 20090122
